FAERS Safety Report 6255531-9 (Version None)
Quarter: 2009Q3

REPORT INFORMATION
  Report Type: 
  Country: None (occurrence: None)
  Receive Date: 20090702
  Receipt Date: 20090624
  Transmission Date: 20100115
  Serious: Yes (Hospitalization)
  Sender: FDA-Public Use
  Company Number: FR-AMGEN-US340339

PATIENT
  Sex: Male
  Weight: 39 kg

DRUGS (3)
  1. ENBREL [Suspect]
     Indication: ANKYLOSING SPONDYLITIS
     Route: 058
     Dates: start: 20080401, end: 20090101
  2. ENBREL [Suspect]
     Route: 058
     Dates: start: 20090101, end: 20090301
  3. ENBREL [Suspect]
     Route: 058
     Dates: start: 20090301

REACTIONS (3)
  - BLOOD IMMUNOGLOBULIN E INCREASED [None]
  - EOSINOPHILIA [None]
  - IRIDOCYCLITIS [None]
